FAERS Safety Report 6483658-5 (Version None)
Quarter: 2009Q4

REPORT INFORMATION
  Report Type: 
  Country: None (occurrence: None)
  Receive Date: 20091209
  Receipt Date: 20091202
  Transmission Date: 20100525
  Serious: Yes (Hospitalization)
  Sender: FDA-Public Use
  Company Number: AU-ASTRAZENECA-2009SE29757

PATIENT
  Age: 31451 Day
  Sex: Male

DRUGS (4)
  1. CRESTOR [Suspect]
     Route: 048
     Dates: start: 20081115, end: 20090410
  2. NEXIUM [Concomitant]
  3. ASPIRIN [Concomitant]
  4. AVAPRO [Concomitant]

REACTIONS (2)
  - LIPASE INCREASED [None]
  - NEPHROLITHIASIS [None]
